FAERS Safety Report 23084906 (Version 1)
Quarter: 2023Q4

REPORT INFORMATION
  Report Type: Report from Study
  Country: HK (occurrence: None)
  Receive Date: 20231019
  Receipt Date: 20231019
  Transmission Date: 20240110
  Serious: Yes (Hospitalization)
  Sender: FDA-Public Use
  Company Number: 2023A228882

PATIENT
  Age: 65 Year
  Sex: Male
  Weight: 54.1 kg

DRUGS (23)
  1. CILGAVIMAB\TIXAGEVIMAB [Suspect]
     Active Substance: CILGAVIMAB\TIXAGEVIMAB
     Indication: COVID-19 prophylaxis
     Dosage: 600.0MG ONCE/SINGLE ADMINISTRATION
     Route: 030
     Dates: start: 20221125, end: 20221125
  2. EDOXABAN TOSILATE TABLET [Concomitant]
     Indication: Cardiovascular disorder
     Route: 048
     Dates: start: 20230507
  3. ACYCLOVIR [Concomitant]
     Active Substance: ACYCLOVIR
     Indication: Prophylaxis
     Route: 048
     Dates: start: 20220801
  4. EMPAGLIFLOZIN TABLET [Concomitant]
     Indication: Hyperglycaemia
     Route: 048
     Dates: start: 20230223
  5. FINASTERIDE [Concomitant]
     Active Substance: FINASTERIDE
     Indication: Symptomatic treatment
     Route: 048
     Dates: start: 20230816
  6. CALCIUM CARBONATE + VITAMIN D CHEWABLE [Concomitant]
     Indication: Nutritional supplementation
     Route: 048
     Dates: start: 20220210
  7. CHLORPHENIRAMINE MALEATE TABLET [Concomitant]
     Indication: Symptomatic treatment
     Route: 048
     Dates: start: 20220210
  8. CLOTRIMAZOLE CREAM TOPICAL [Concomitant]
     Dosage: AS REQUIRED
     Route: 061
     Dates: start: 20230222
  9. COTRIMOXAZOLE TABLET ANTIBACTERIAL INFECTION [Concomitant]
     Dosage: AS REQUIRED
     Route: 048
     Dates: start: 20230802
  10. ENTECAVIR [Concomitant]
     Active Substance: ENTECAVIR
     Indication: Congenital hepatitis B infection
     Route: 048
     Dates: start: 20220801
  11. DIGOXIN [Concomitant]
     Active Substance: DIGOXIN
     Route: 048
     Dates: start: 20230215
  12. FRUSEMIDE TABLET [Concomitant]
     Indication: Hypervolaemia
     Dosage: AS REQUIRED
     Route: 048
     Dates: start: 20230826
  13. FAKTU RECTAL SUPPOSITORY [Concomitant]
     Indication: Symptomatic treatment
     Dosage: AS REQUIRED
     Route: 054
     Dates: start: 20230112
  14. GLYCERYL TRINITRATE SUBLINGUAL TABLET [Concomitant]
     Route: 060
     Dates: start: 20230221
  15. PANTOPRAZOLE SODIUM [Concomitant]
     Active Substance: PANTOPRAZOLE SODIUM
     Indication: Prophylaxis
     Route: 048
     Dates: start: 20230525
  16. LACTULOSE [Concomitant]
     Active Substance: LACTULOSE
     Dosage: AS REQUIRED
     Dates: start: 20220722
  17. LOSARTAN POTASSIUM [Concomitant]
     Active Substance: LOSARTAN POTASSIUM
     Indication: Hypertension
     Dosage: AS REQUIRED
     Route: 048
     Dates: start: 20210708
  18. THIAMINE HCL TABLET [Concomitant]
     Indication: Nutritional supplementation
     Route: 048
     Dates: start: 20230705
  19. BISACODYL [Concomitant]
     Active Substance: BISACODYL
     Indication: Symptomatic treatment
     Route: 054
     Dates: start: 20230304
  20. ACETAMINOPHEN [Concomitant]
     Active Substance: ACETAMINOPHEN
     Indication: Symptomatic treatment
     Dosage: AS REQUIRED
     Route: 048
     Dates: start: 20210708
  21. SENNA TABLET [Concomitant]
     Indication: Nutritional supplementation
     Dosage: AS REQUIRED
     Route: 048
     Dates: start: 20220722
  22. TELFAST D EXTENDED RELEASE TABLET [Concomitant]
     Indication: Symptomatic treatment
     Route: 048
     Dates: start: 20210708
  23. ZOPICLONE [Concomitant]
     Active Substance: ZOPICLONE
     Indication: Symptomatic treatment
     Route: 048
     Dates: start: 20230113

REACTIONS (1)
  - Cardiac failure [Recovered/Resolved]

NARRATIVE: CASE EVENT DATE: 20230830
